FAERS Safety Report 7371502-3 (Version None)
Quarter: 2011Q1

REPORT INFORMATION
  Report Type: 
  Country: None (occurrence: None)
  Receive Date: 20110324
  Receipt Date: 20110316
  Transmission Date: 20110831
  Serious: Yes (Hospitalization, Other)
  Sender: FDA-Public Use
  Company Number: BR-US-EMD SERONO, INC.-7048521

PATIENT
  Sex: Female

DRUGS (5)
  1. SIMVASTATIN [Concomitant]
  2. AMLODIL [Concomitant]
  3. METFORMIN [Concomitant]
  4. REBIF [Suspect]
     Indication: PRIMARY PROGRESSIVE MULTIPLE SCLEROSIS
     Dates: start: 20031201
  5. GLICAMIN [Concomitant]

REACTIONS (6)
  - BLINDNESS [None]
  - TYPE 2 DIABETES MELLITUS [None]
  - MULTIPLE SCLEROSIS RELAPSE [None]
  - PARAESTHESIA [None]
  - MUSCULAR WEAKNESS [None]
  - OFF LABEL USE [None]
